FAERS Safety Report 16715761 (Version 1)
Quarter: 2019Q3

REPORT INFORMATION
  Report Type: Spontaneous
  Country: US (occurrence: US)
  Receive Date: 20190819
  Receipt Date: 20190819
  Transmission Date: 20191005
  Serious: No
  Sender: FDA-Public Use
  Company Number: US-SUNOVION-2019SUN003336

PATIENT

DRUGS (3)
  1. AMITRIPTYLINE [Suspect]
     Active Substance: AMITRIPTYLINE
  2. LATUDA [Suspect]
     Active Substance: LURASIDONE HYDROCHLORIDE
     Route: 048
  3. DOXEPIN [Suspect]
     Active Substance: DOXEPIN

REACTIONS (4)
  - Insomnia [Unknown]
  - Hallucination [Unknown]
  - Tinnitus [Unknown]
  - Aggression [Unknown]
